FAERS Safety Report 14829237 (Version 1)
Quarter: 2018Q2

REPORT INFORMATION
  Report Type: Report from Study
  Country: ID (occurrence: ID)
  Receive Date: 20180430
  Receipt Date: 20180430
  Transmission Date: 20180711
  Serious: Yes (Death, Life-Threatening, Hospitalization)
  Sender: FDA-Public Use
  Company Number: ID-BAYER-2018-078755

PATIENT
  Sex: Male

DRUGS (1)
  1. NEXAVAR [Suspect]
     Active Substance: SORAFENIB
     Indication: HEPATOCELLULAR CARCINOMA
     Dosage: 2 X 200 MG
     Route: 048
     Dates: start: 20180223, end: 20180323

REACTIONS (3)
  - Haemorrhage [Fatal]
  - Condition aggravated [None]
  - Cryotherapy [None]
